FAERS Safety Report 19642562 (Version 1)
Quarter: 2021Q3

REPORT INFORMATION
  Report Type: Spontaneous
  Country: CN (occurrence: CN)
  Receive Date: 20210730
  Receipt Date: 20210730
  Transmission Date: 20211014
  Serious: Yes (Hospitalization)
  Sender: FDA-Public Use
  Company Number: CN-PFIZER INC-202100910257

PATIENT
  Age: 69 Year
  Sex: Male
  Weight: 58 kg

DRUGS (2)
  1. MEDROL [Suspect]
     Active Substance: METHYLPREDNISOLONE
     Dosage: 16 MG, 1X/DAY
     Route: 048
     Dates: start: 20210612, end: 20210710
  2. MEDROL [Suspect]
     Active Substance: METHYLPREDNISOLONE
     Indication: MYELITIS
     Dosage: DOSE WAS ADJUSTED BETWEEN 4MG?24MG
     Route: 048
     Dates: start: 20210207

REACTIONS (3)
  - Haematochezia [Recovering/Resolving]
  - Gastrointestinal erosion [Recovering/Resolving]
  - Off label use [Unknown]

NARRATIVE: CASE EVENT DATE: 20210207
